FAERS Safety Report 5369636-8 (Version None)
Quarter: 2007Q2

REPORT INFORMATION
  Report Type: 
  Country: None (occurrence: None)
  Receive Date: 20070620
  Receipt Date: 20070611
  Transmission Date: 20071010
  Serious: Yes (Disabling)
  Sender: FDA-Public Use
  Company Number: TPA2007A01205

PATIENT
  Age: 83 Year
  Sex: Female

DRUGS (4)
  1. ACTOS [Suspect]
     Indication: DIABETES MELLITUS NON-INSULIN-DEPENDENT
     Dosage: 30 MG, 1 IN 1 D, PER ORAL
     Route: 048
  2. SYNTHROID [Concomitant]
  3. FOSAMAX [Concomitant]
  4. INSULIN (INSULIN) [Concomitant]

REACTIONS (3)
  - BLINDNESS [None]
  - CATARACT OPERATION [None]
  - EYE HAEMORRHAGE [None]
